FAERS Safety Report 6387233-2 (Version None)
Quarter: 2009Q3

REPORT INFORMATION
  Report Type: 
  Country: None (occurrence: None)
  Receive Date: 20090928
  Receipt Date: 20090914
  Transmission Date: 20100115
  Serious: Yes (Death)
  Sender: FDA-Public Use
  Company Number: OPIR20090045

PATIENT
  Age: 34 Year
  Sex: Female

DRUGS (4)
  1. OPANA [Suspect]
     Indication: DRUG USE FOR UNKNOWN INDICATION
     Dosage: TID, UNK
  2. ACETAMINOPHEN AND OXYCODONE HCL [Concomitant]
  3. ADDERALL (DEXAMFETAMINE SULFATE, AMFETAMINE SULFATE, DEXAMFETAMINE SAC [Concomitant]
  4. ALPRAZOLAM [Concomitant]

REACTIONS (2)
  - ACCIDENTAL DEATH [None]
  - DRUG TOXICITY [None]
